FAERS Safety Report 9230564 (Version 1)
Quarter: 2013Q2

REPORT INFORMATION
  Report Type: Spontaneous
  Country: US (occurrence: US)
  Receive Date: 20130415
  Receipt Date: 20130415
  Transmission Date: 20140414
  Serious: Yes (Other)
  Sender: FDA-Public Use
  Company Number: US-ASTRAZENECA-2013SE22541

PATIENT
  Age: 61 Year
  Sex: Male

DRUGS (2)
  1. BRILINTA [Suspect]
     Route: 048
  2. TAKES MANY DRUGS [Concomitant]

REACTIONS (3)
  - Sinus disorder [Unknown]
  - Extrasystoles [Unknown]
  - Dyspnoea [Unknown]
